FAERS Safety Report 6659076-3 (Version None)
Quarter: 2010Q1

REPORT INFORMATION
  Report Type: 
  Country: None (occurrence: None)
  Receive Date: 20100324
  Receipt Date: 20100318
  Transmission Date: 20100710
  Serious: Yes (Other)
  Sender: FDA-Public Use
  Company Number: 2010SP011467

PATIENT
  Age: 71 Year
  Sex: Male

DRUGS (12)
  1. ROCURONIUM BROMIDE [Suspect]
     Indication: ANAESTHESIA
  2. ALFENTANIL [Suspect]
     Indication: ANAESTHESIA
     Dosage: IV
     Route: 042
  3. PROPOFOL [Suspect]
     Indication: ANAESTHESIA
  4. LEVOBUPIVACAINE [Concomitant]
  5. CLONIDINE [Concomitant]
  6. CEFUROXIME [Concomitant]
  7. NOREPINEPHRINE [Concomitant]
  8. INSULIN [Concomitant]
  9. RANITIDINE HCL [Concomitant]
  10. SIMVASTATIN [Concomitant]
  11. ASPIRIN [Concomitant]
  12. PARACETAMOL [Concomitant]

REACTIONS (14)
  - ATRIAL FIBRILLATION [None]
  - BRADYCARDIA [None]
  - CARDIO-RESPIRATORY ARREST [None]
  - DEMYELINATING POLYNEUROPATHY [None]
  - DYSPHAGIA [None]
  - DYSPHONIA [None]
  - HYPERHIDROSIS [None]
  - HYPOXIA [None]
  - INCREASED BRONCHIAL SECRETION [None]
  - LABILE BLOOD PRESSURE [None]
  - MUSCULAR WEAKNESS [None]
  - NOSOCOMIAL INFECTION [None]
  - PARALYSIS FLACCID [None]
  - PNEUMONIA [None]
